FAERS Safety Report 25546594 (Version 5)
Quarter: 2025Q4

REPORT INFORMATION
  Report Type: Spontaneous
  Country: JP (occurrence: JP)
  Receive Date: 20250713
  Receipt Date: 20251103
  Transmission Date: 20260118
  Serious: Yes (Hospitalization)
  Sender: JOHNSON AND JOHNSON
  Company Number: JP-JNJFOC-20250713443

PATIENT
  Age: 8 Decade
  Sex: Male

DRUGS (1)
  1. SIMPONI [Suspect]
     Active Substance: GOLIMUMAB
     Indication: Product used for unknown indication
     Route: 058
     Dates: start: 20250425, end: 20250704

REACTIONS (2)
  - Colitis ulcerative [Recovered/Resolved]
  - Cytomegalovirus test positive [Unknown]

NARRATIVE: CASE EVENT DATE: 20250101
